FAERS Safety Report 20347933 (Version 1)
Quarter: 2022Q1

REPORT INFORMATION
  Report Type: Spontaneous
  Country: US (occurrence: US)
  Receive Date: 20220118
  Receipt Date: 20220118
  Transmission Date: 20220423
  Serious: No
  Sender: FDA-Public Use
  Company Number: US-Blueprint Medicines Corporation-SP-US-2022-000094

PATIENT
  Age: 66 Year
  Sex: Male

DRUGS (2)
  1. AYVAKIT [Suspect]
     Active Substance: AVAPRITINIB
     Indication: Prostate cancer
     Route: 048
     Dates: start: 20211208
  2. Orogvyx [Concomitant]
     Indication: Prostate cancer
     Route: 048

REACTIONS (2)
  - Orbital oedema [Unknown]
  - Off label use [Unknown]

NARRATIVE: CASE EVENT DATE: 20211208
